FAERS Safety Report 5150665-4 (Version None)
Quarter: 2006Q4

REPORT INFORMATION
  Report Type: 
  Country: None (occurrence: None)
  Receive Date: 20061108
  Receipt Date: 20061026
  Transmission Date: 20070319
  Serious: Yes (Hospitalization)
  Sender: FDA-Public Use
  Company Number: HQWYE636226OCT06

PATIENT
  Age: 73 Year
  Sex: Female

DRUGS (17)
  1. PANTOZOL (PANTOPRAZOLE, UNSPEC) [Suspect]
     Indication: REFLUX OESOPHAGITIS
     Dosage: 20 MG, FREQUENCY NOT SPECIFIED ORAL
     Route: 048
     Dates: start: 19990101
  2. ASPIRIN [Suspect]
     Dosage: 100 MG 1X PER 1 DAY ORAL
     Route: 048
     Dates: start: 19860101
  3. BISOPROLOL (BISOPROLOL, TABLET) [Suspect]
     Dosage: 5 MG 1X PER 1 DAY ORAL
     Route: 048
     Dates: start: 19990101
  4. CALCIUM WITH VITAMIN D (CALCIUM PHOSPHATE/CALCIUM SODIUM LACTATE/ERGOC [Suspect]
     Indication: OSTEOPOROSIS
     Dosage: ^DF^ ORAL
     Route: 048
  5. ENALAPRIL MALEATE [Suspect]
     Dosage: UNKNOWN
     Route: 065
  6. HYDROCHLOROTHIAZIDE [Suspect]
     Indication: MYOCARDIAL INFARCTION
     Dosage: ^DF^ ORAL
     Route: 048
     Dates: start: 20060401
  7. LACTULOSE [Suspect]
     Indication: CONSTIPATION
     Dosage: ^DF^ ORAL
     Route: 048
     Dates: start: 20060501
  8. LISINOPRIL [Suspect]
     Indication: ESSENTIAL HYPERTENSION
     Dosage: 20 MG, ^DF^, FREQUENCY NOT SPECIFIED ORAL
     Route: 048
     Dates: start: 20060401
  9. LISINOPRIL [Suspect]
     Indication: MYOCARDIAL INFARCTION
     Dosage: 20 MG, ^DF^, FREQUENCY NOT SPECIFIED ORAL
     Route: 048
     Dates: start: 20060401
  10. ISRADIPINE [Suspect]
     Indication: ESSENTIAL HYPERTENSION
     Dosage: ^DF^ UNKNOWN
     Route: 065
     Dates: start: 19940101, end: 20051201
  11. ISRADIPINE [Suspect]
     Dosage: 5 MG 1X PER 1 DAY ORAL
     Route: 048
  12. MOXONIDINE (MOXONIDINE, ) [Suspect]
     Indication: ESSENTIAL HYPERTENSION
     Dosage: 0.3 MG 1X PER 1 DAY ORAL
     Route: 048
     Dates: start: 20041201
  13. NIFEDIPINE [Suspect]
     Dosage: UNKNOWN
     Route: 065
  14. OPIPRAMOL (OPIPRAMOL, ) [Suspect]
     Indication: DEPRESSION
     Dosage: 50 MG 1X PER 1 DAY ORAL
     Route: 048
     Dates: start: 20051201
  15. PALLADONE [Suspect]
     Indication: PAIN
     Dosage: ^4 MG^, DOSE AND FREQUENCY NOT SPECIFIED ORAL
     Route: 048
     Dates: start: 20060501
  16. STROTIUM RANELATE (STRONTIUM RANELATE, ) [Suspect]
     Indication: OSTEOPOROSIS
     Dosage: 2 G 1X PER 1 DAY ORAL
     Route: 048
     Dates: start: 20050601
  17. TORSEMIDE [Suspect]
     Indication: ESSENTIAL HYPERTENSION
     Dosage: 5 MG 1X PER 1 DAY ORAL
     Route: 048
     Dates: start: 20060401

REACTIONS (6)
  - BLOOD PRESSURE INADEQUATELY CONTROLLED [None]
  - BURNING SENSATION [None]
  - CEREBROVASCULAR ACCIDENT [None]
  - DRUG INTERACTION [None]
  - FACE OEDEMA [None]
  - FLUSHING [None]
